FAERS Safety Report 9925516 (Version 2)
Quarter: 2014Q1

REPORT INFORMATION
  Report Type: Report from Study
  Country: JP (occurrence: JP)
  Receive Date: 20140226
  Receipt Date: 20140226
  Transmission Date: 20141002
  Serious: Yes (Death)
  Sender: FDA-Public Use
  Company Number: JP-VERTEX PHARMACEUTICALS INC.-2013-001765

PATIENT
  Age: 57 Year
  Sex: Male

DRUGS (13)
  1. VX-950 (TELAPREVIR) [Suspect]
     Indication: CHRONIC HEPATITIS C
     Dosage: 2250 MG, QD
     Route: 048
     Dates: start: 20120213, end: 20120312
  2. PEGINTRON [Suspect]
     Indication: CHRONIC HEPATITIS C
     Dosage: 1.5 ?G/KG, QW
     Route: 058
     Dates: start: 20120213, end: 20120312
  3. PEGINTRON [Suspect]
     Dosage: 0.75 ?G/KG, QW
     Route: 058
     Dates: start: 20120319, end: 20120531
  4. PEGINTRON [Suspect]
     Dosage: 0.75 ?G/KG, QW
     Route: 058
     Dates: start: 20120615, end: 20130816
  5. REBETOL [Suspect]
     Indication: CHRONIC HEPATITIS C
     Dosage: 400 MG, QD
     Route: 048
     Dates: start: 20120213, end: 20120312
  6. REBETOL [Suspect]
     Dosage: 400 MG, QD
     Route: 048
     Dates: start: 20120319, end: 20130816
  7. NESINA [Concomitant]
     Dosage: 25 MG, UNK
     Route: 048
  8. AMARYL [Concomitant]
     Dosage: 1 MG, QD
     Route: 048
  9. AMARYL [Concomitant]
     Dosage: 2 MG, QD
     Route: 048
  10. MYSLEE [Concomitant]
     Dosage: 5 MG, QD
     Route: 048
     Dates: start: 20120213, end: 20120525
  11. FERROMIA [Concomitant]
     Dosage: 100 MG, QD
     Route: 048
     Dates: start: 20120217
  12. OMEPRAL [Concomitant]
     Dosage: 20 MG, QD
     Route: 048
  13. ACTOS [Concomitant]
     Dosage: 15 MG, QD
     Route: 048

REACTIONS (1)
  - Hepatic failure [Fatal]
